FAERS Safety Report 9346747 (Version 1)
Quarter: 2013Q2

REPORT INFORMATION
  Report Type: Report from Study
  Country: US (occurrence: US)
  Receive Date: 20130613
  Receipt Date: 20130613
  Transmission Date: 20140414
  Serious: Yes (Hospitalization, Other)
  Sender: FDA-Public Use
  Company Number: US-BRISTOL-MYERS SQUIBB COMPANY-14414155

PATIENT
  Age: 47 Year
  Sex: Male

DRUGS (12)
  1. IPILIMUMAB [Suspect]
     Indication: MALIGNANT MELANOMA
     Dosage: STARTED ON 26SEP08
     Route: 042
     Dates: start: 20081107, end: 20081107
  2. ALBUTEROL SULFATE [Concomitant]
     Dates: start: 20081107
  3. GUAIFENESIN + CODEINE [Concomitant]
     Dates: start: 20081107
  4. PREDNISONE [Concomitant]
     Route: 048
     Dates: start: 20081113
  5. PRILOSEC [Concomitant]
     Dates: start: 20081113
  6. OXYCODONE [Concomitant]
     Dosage: 1 EVERY 6 HOURS
     Route: 048
  7. CYCLOSPORINE [Concomitant]
     Route: 048
  8. LORAZEPAM [Concomitant]
     Route: 048
  9. PROTONIX [Concomitant]
     Route: 048
  10. INSULIN ASPART [Concomitant]
     Route: 058
  11. INSULIN GLARGINE [Concomitant]
     Dosage: 20 UNITS AT BEDTIME
     Route: 058
  12. FLUDROCORTISONE [Concomitant]
     Route: 048

REACTIONS (8)
  - Febrile neutropenia [Recovered/Resolved with Sequelae]
  - Neutropenia [Recovered/Resolved with Sequelae]
  - Thrombocytopenia [Not Recovered/Not Resolved]
  - Necrotising fasciitis [Recovered/Resolved with Sequelae]
  - Cellulitis of male external genital organ [Recovered/Resolved with Sequelae]
  - Lung infiltration [Recovered/Resolved with Sequelae]
  - Diabetes mellitus [Recovered/Resolved with Sequelae]
  - Renal failure acute [Recovered/Resolved with Sequelae]
